FAERS Safety Report 6872094-5 (Version None)
Quarter: 2010Q3

REPORT INFORMATION
  Report Type: 
  Country: None (occurrence: None)
  Receive Date: 20100723
  Receipt Date: 20100713
  Transmission Date: 20110219
  Serious: Yes (Other)
  Sender: FDA-Public Use
  Company Number: DE-PFIZER INC-2010074227

PATIENT
  Age: 76 Year
  Sex: Male

DRUGS (1)
  1. ATARAX [Suspect]
     Indication: PRURITUS
     Dosage: 25 MG, UNK
     Route: 048
     Dates: start: 20061005, end: 20061016

REACTIONS (2)
  - CONFUSIONAL STATE [None]
  - HYPERPARATHYROIDISM [None]
